FAERS Safety Report 4581339-6 (Version None)
Quarter: 2005Q1

REPORT INFORMATION
  Report Type: 
  Country: None (occurrence: None)
  Receive Date: 20050214
  Receipt Date: 20040930
  Transmission Date: 20050727
  Serious: No
  Sender: FDA-Public Use
  Company Number: US-GLAXOSMITHKLINE-A0527972A

PATIENT
  Age: 27 Year
  Sex: Female

DRUGS (6)
  1. LAMICTAL [Suspect]
     Indication: BIPOLAR DISORDER
     Dosage: 150MG TWICE PER DAY
     Route: 048
     Dates: start: 20040301
  2. RISPERDAL [Concomitant]
  3. KLONOPIN [Concomitant]
  4. BUSPAR [Concomitant]
  5. SYNTHROID [Concomitant]
  6. LO/OVRAL [Concomitant]

REACTIONS (1)
  - AMENORRHOEA [None]
